FAERS Safety Report 25120348 (Version 1)
Quarter: 2025Q1

REPORT INFORMATION
  Report Type: Report from Study
  Country: US (occurrence: US)
  Receive Date: 20250325
  Receipt Date: 20250325
  Transmission Date: 20250408
  Serious: Yes (Hospitalization, Other)
  Sender: ABBVIE
  Company Number: US-ABBVIE-6057906

PATIENT
  Age: 69 Year
  Sex: Female
  Weight: 58 kg

DRUGS (15)
  1. HUMIRA [Suspect]
     Active Substance: ADALIMUMAB
     Indication: Rheumatoid arthritis
     Dosage: CITRATE FREE, STRENGTH: 40 MILLIGRAM
     Route: 058
     Dates: start: 20240827
  2. HUMIRA [Suspect]
     Active Substance: ADALIMUMAB
     Dosage: START DATE TEXT: MANY YEARS AGO, CITRATE FREE, STRENGTH: 40 MILLIGRAM
     Route: 058
     Dates: end: 2020
  3. LOSARTAN [Concomitant]
     Active Substance: LOSARTAN
     Indication: Blood pressure measurement
  4. FERROUS SULFATE [Concomitant]
     Active Substance: FERROUS SULFATE
     Indication: Anaemia
  5. GLIPIZIDE [Concomitant]
     Active Substance: GLIPIZIDE
     Indication: Diabetes mellitus
  6. METFORMIN [Concomitant]
     Active Substance: METFORMIN HYDROCHLORIDE
     Indication: Diabetes mellitus
  7. METHOTREXATE [Concomitant]
     Active Substance: METHOTREXATE
     Indication: Arthritis
  8. ROSUVASTATIN [Concomitant]
     Active Substance: ROSUVASTATIN
     Indication: Blood cholesterol
  9. CHLORTHALIDONE [Concomitant]
     Active Substance: CHLORTHALIDONE
     Indication: Hypertension
  10. PREDNISONE [Concomitant]
     Active Substance: PREDNISONE
     Indication: Arthritis
  11. Semglee [Concomitant]
     Indication: Diabetes mellitus
  12. INSULIN LISPRO [Concomitant]
     Active Substance: INSULIN LISPRO
     Indication: Diabetes mellitus
  13. LINZESS [Concomitant]
     Active Substance: LINACLOTIDE
     Indication: Gastrointestinal motility disorder
  14. ESTRADIOL [Concomitant]
     Active Substance: ESTRADIOL
     Indication: Vulvovaginal dryness
  15. POTASSIUM CHLORIDE [Concomitant]
     Active Substance: POTASSIUM CHLORIDE
     Indication: Anaemia

REACTIONS (9)
  - Intestinal obstruction [Recovered/Resolved]
  - Constipation [Recovered/Resolved]
  - Cataract [Recovered/Resolved]
  - Dysgraphia [Unknown]
  - Arthralgia [Recovering/Resolving]
  - Finger deformity [Recovering/Resolving]
  - Glaucoma [Recovering/Resolving]
  - Abdominal pain [Recovered/Resolved]
  - Loss of personal independence in daily activities [Unknown]

NARRATIVE: CASE EVENT DATE: 20240101
